FAERS Safety Report 4383823-7 (Version None)
Quarter: 2004Q2

REPORT INFORMATION
  Report Type: 
  Country: None (occurrence: None)
  Receive Date: 20040608
  Receipt Date: 20031027
  Transmission Date: 20050107
  Serious: Yes (Other)
  Sender: FDA-Public Use
  Company Number: 200313939BCC

PATIENT

DRUGS (3)
  1. ALEVE [Suspect]
     Indication: BACK INJURY
     Dosage: 440 MG ONCE ORAL
     Route: 048
     Dates: start: 20031026
  2. ALEVE [Suspect]
     Indication: PAIN
     Dosage: 440 MG ONCE ORAL
     Route: 048
     Dates: start: 20031026
  3. HORMONES [Concomitant]

REACTIONS (1)
  - DYSPNOEA [None]
